FAERS Safety Report 6150281-1 (Version None)
Quarter: 2009Q2

REPORT INFORMATION
  Report Type: 
  Country: None (occurrence: None)
  Receive Date: 20090409
  Receipt Date: 20090406
  Transmission Date: 20091009
  Serious: Yes (Hospitalization)
  Sender: FDA-Public Use
  Company Number: US-MERCK-0904USA00897

PATIENT
  Age: 50 Year
  Sex: Male

DRUGS (1)
  1. JANUVIA [Suspect]
     Indication: DIABETES MELLITUS
     Route: 048

REACTIONS (1)
  - PYREXIA [None]
